FAERS Safety Report 23620677 (Version 3)
Quarter: 2025Q3

REPORT INFORMATION
  Report Type: Spontaneous
  Country: US (occurrence: US)
  Receive Date: 20240312
  Receipt Date: 20250724
  Transmission Date: 20251021
  Serious: Yes (Other)
  Sender: CHIESI
  Company Number: US-CHIESI-2024CHF01268

PATIENT
  Age: 18 Year
  Sex: Male
  Weight: 63 kg

DRUGS (7)
  1. FERRIPROX [Suspect]
     Active Substance: DEFERIPRONE
     Indication: Hereditary haemolytic anaemia
     Dosage: 3000 MILLIGRAM, BID
     Route: 048
     Dates: start: 20230413
  2. FERRIPROX [Suspect]
     Active Substance: DEFERIPRONE
     Indication: Iron metabolism disorder
  3. FERRIPROX [Suspect]
     Active Substance: DEFERIPRONE
     Indication: Iron overload
  4. FLONASE [Concomitant]
     Active Substance: FLUTICASONE PROPIONATE
     Indication: Product used for unknown indication
  5. FOLIC ACID [Concomitant]
     Active Substance: FOLIC ACID
     Indication: Product used for unknown indication
     Dosage: 1 MILLIGRAM, QD
  6. VITAMINS [Concomitant]
     Active Substance: VITAMINS
     Indication: Product used for unknown indication
     Dosage: UNK, QD
  7. LOSARTAN [Concomitant]
     Active Substance: LOSARTAN
     Indication: Iron metabolism disorder
     Dosage: UNK, QD

REACTIONS (6)
  - Haemoglobin decreased [Not Recovered/Not Resolved]
  - Product use complaint [Not Recovered/Not Resolved]
  - Anxiety [Not Recovered/Not Resolved]
  - Reticulocyte count decreased [Not Recovered/Not Resolved]
  - Drug ineffective [Not Recovered/Not Resolved]
  - Product size issue [Recovered/Resolved]

NARRATIVE: CASE EVENT DATE: 20230701
